FAERS Safety Report 18216729 (Version 2)
Quarter: 2020Q4

REPORT INFORMATION
  Report Type: Spontaneous
  Country: PL (occurrence: PL)
  Receive Date: 20200901
  Receipt Date: 20201106
  Transmission Date: 20210113
  Serious: Yes (Hospitalization, Other)
  Sender: FDA-Public Use
  Company Number: PL-SUN PHARMACEUTICAL INDUSTRIES LTD-2020RR-259609

PATIENT
  Age: 28 Year
  Sex: Male

DRUGS (20)
  1. ACYCLOVIR [ACICLOVIR] [Suspect]
     Active Substance: ACYCLOVIR
     Dosage: ()
     Route: 042
  2. PREGABALIN. [Suspect]
     Active Substance: PREGABALIN
     Indication: HAIRY CELL LEUKAEMIA
     Dosage: 150 MILLIGRAM, DAILY
     Route: 065
  3. BENDAMUSTINE [Suspect]
     Active Substance: BENDAMUSTINE
     Indication: HAIRY CELL LEUKAEMIA
     Dosage: ()
     Route: 042
  4. ACYCLOVIR [ACICLOVIR] [Suspect]
     Active Substance: ACYCLOVIR
     Indication: HAIRY CELL LEUKAEMIA
     Dosage: ()
     Route: 042
  5. CYCLOSPORINE. [Suspect]
     Active Substance: CYCLOSPORINE
     Dosage: ()
     Route: 065
  6. RITUXIMAB. [Suspect]
     Active Substance: RITUXIMAB
     Indication: HAIRY CELL LEUKAEMIA
     Dosage: ()
     Route: 065
  7. RITUXIMAB. [Suspect]
     Active Substance: RITUXIMAB
     Dosage: ()
     Route: 065
  8. BENDAMUSTINE [Suspect]
     Active Substance: BENDAMUSTINE
     Dosage: ()
     Route: 042
  9. CYCLOPHOSPHAMIDE. [Suspect]
     Active Substance: CYCLOPHOSPHAMIDE
     Indication: HAIRY CELL LEUKAEMIA
     Dosage: 120 MILLIGRAM/KILOGRAM, UNK
     Route: 065
  10. VEMURAFENIB. [Suspect]
     Active Substance: VEMURAFENIB
     Indication: HAIRY CELL LEUKAEMIA
     Dosage: 20 WEEKS
     Route: 065
  11. METHOTREXATE. [Suspect]
     Active Substance: METHOTREXATE
     Indication: PROPHYLAXIS AGAINST GRAFT VERSUS HOST DISEASE
     Dosage: ()
     Route: 065
  12. INTERFERON ALFA-2A [Suspect]
     Active Substance: INTERFERON ALFA-2A
     Indication: HAIRY CELL LEUKAEMIA
     Dosage: ()
     Route: 065
  13. INTERFERON ALFA-2A [Suspect]
     Active Substance: INTERFERON ALFA-2A
     Dosage: ()
     Route: 065
  14. CLADRIBINE. [Suspect]
     Active Substance: CLADRIBINE
     Indication: HAIRY CELL LEUKAEMIA
     Dosage: FOR 5 CONSECUTIVE DAYS
     Route: 042
  15. VEMURAFENIB. [Suspect]
     Active Substance: VEMURAFENIB
     Dosage: 20 WEEKS
     Route: 065
  16. ANTITHYMOCYTE IMMUNOGLOBULIN [Suspect]
     Active Substance: THYMOCYTE IMMUNE GLOBULIN NOS
     Route: 065
  17. CYCLOSPORINE. [Suspect]
     Active Substance: CYCLOSPORINE
     Indication: PROPHYLAXIS AGAINST GRAFT VERSUS HOST DISEASE
     Dosage: ()
     Route: 065
  18. CYCLOPHOSPHAMIDE. [Suspect]
     Active Substance: CYCLOPHOSPHAMIDE
     Route: 065
  19. ANTITHYMOCYTE IMMUNOGLOBULIN [Suspect]
     Active Substance: THYMOCYTE IMMUNE GLOBULIN NOS
     Indication: HAIRY CELL LEUKAEMIA
     Dosage: 2500 MILLIGRAM, UNK
     Route: 065
  20. CLADRIBINE. [Suspect]
     Active Substance: CLADRIBINE
     Dosage: FOR 5 CONSECUTIVE DAYS
     Route: 042

REACTIONS (6)
  - Protein total increased [Unknown]
  - Neuropathy peripheral [Unknown]
  - Neurological decompensation [Unknown]
  - Nervous system disorder [Recovering/Resolving]
  - Behaviour disorder [Unknown]
  - Therapeutic product effect incomplete [Recovering/Resolving]
